FAERS Safety Report 5104224-X (Version None)
Quarter: 2006Q3

REPORT INFORMATION
  Report Type: 
  Country: None (occurrence: None)
  Receive Date: 20060911
  Receipt Date: 20060831
  Transmission Date: 20061208
  Serious: Yes (Death)
  Sender: FDA-Public Use
  Company Number: GXKR2006DK05449

PATIENT
  Age: 75 Year
  Sex: Male
  Weight: 70 kg

DRUGS (1)
  1. TIAMAZOL 1A FARMA (NGX) (THIAMAZOLE)TABLET, 5MG [Suspect]
     Indication: METABOLIC DISORDER
     Dosage: 5 MG, UNK, ORAL
     Route: 048
     Dates: start: 19951201, end: 20060626

REACTIONS (5)
  - IMMUNE SYSTEM DISORDER [None]
  - INFECTION [None]
  - LEUKOPENIA [None]
  - MULTI-ORGAN FAILURE [None]
  - MYELODYSPLASTIC SYNDROME [None]
